FAERS Safety Report 6379463-0 (Version None)
Quarter: 2009Q3

REPORT INFORMATION
  Report Type: 
  Country: None (occurrence: None)
  Receive Date: 20090928
  Receipt Date: 20090916
  Transmission Date: 20100115
  Serious: Yes (Other)
  Sender: FDA-Public Use
  Company Number: B0593675A

PATIENT
  Sex: Male

DRUGS (2)
  1. LAMOTRIGINE [Suspect]
     Route: 065
  2. SEROXAT [Suspect]
     Indication: OBSESSIVE-COMPULSIVE DISORDER
     Route: 065

REACTIONS (3)
  - AGGRESSION [None]
  - AGITATION [None]
  - MALAISE [None]
